FAERS Safety Report 13796626 (Version 1)
Quarter: 2017Q3

REPORT INFORMATION
  Report Type: Report from Study
  Country: US (occurrence: US)
  Receive Date: 20170726
  Receipt Date: 20170726
  Transmission Date: 20171127
  Serious: No
  Sender: FDA-Public Use
  Company Number: US-AMGEN-USASL2017063643

PATIENT
  Age: 65 Year
  Sex: Female
  Weight: 60 kg

DRUGS (22)
  1. ANTIVERT [Concomitant]
     Active Substance: MECLIZINE HYDROCHLORIDE
     Dosage: UNK UNK, AS NECESSARY
     Dates: start: 20130722
  2. HYDROMET [Concomitant]
     Active Substance: HOMATROPINE METHYLBROMIDE\HYDROCODONE BITARTRATE
     Indication: COUGH
     Dosage: UNK UNK, AS NECESSARY (1 TISPOON EVERY 4 TO 6 HRS)
     Route: 048
     Dates: start: 20170311
  3. NEXIUM [Concomitant]
     Active Substance: ESOMEPRAZOLE MAGNESIUM
     Dosage: 40 MG (1 CAPSULE), QOD
     Dates: start: 20130722
  4. ONDANSETRON [Concomitant]
     Active Substance: ONDANSETRON
     Dosage: 8 MG, 1 TABLET DISSOLVE ON TOUNGE EVERY EIGHTH HOURS AS NECESSARY
     Dates: start: 20161116
  5. TRAMADOL. [Concomitant]
     Active Substance: TRAMADOL
     Dosage: 1-2 TABLETS, BID AS NECESSARY
     Route: 048
     Dates: start: 20170322
  6. STOOL SOFTENER (DOCUSATE) [Concomitant]
     Active Substance: DOCUSATE
     Dosage: UNK UNK, QOD
     Dates: start: 20141126
  7. CLONAZEPAM. [Concomitant]
     Active Substance: CLONAZEPAM
     Dosage: 1-2 TABLETS, AS NECESSARY
     Route: 048
     Dates: start: 20170125
  8. VITAMIN D3 [Concomitant]
     Active Substance: CHOLECALCIFEROL
     Dosage: 1 TABLET, QD
     Route: 048
     Dates: start: 20130722
  9. KYPROLIS [Suspect]
     Active Substance: CARFILZOMIB
     Dosage: 44 MG, ON DAY 1, 2, 8, 9, 15, AND 16 EVERY 28 DAYS
     Route: 042
  10. ALLOPURINOL. [Concomitant]
     Active Substance: ALLOPURINOL
     Dosage: 150 MG (HALF TABLET), QD
     Dates: start: 20170309
  11. ASPIRIN. [Concomitant]
     Active Substance: ASPIRIN
     Dosage: 81 MG, QD (1 TABLET)
     Dates: start: 20130724
  12. DEXAMETHASONE. [Concomitant]
     Active Substance: DEXAMETHASONE
     Dosage: 5 TABLETS, QWK
     Route: 048
     Dates: start: 20161005
  13. POMALYST [Concomitant]
     Active Substance: POMALIDOMIDE
     Dosage: UNK
  14. LEVOTHYROXINE. [Concomitant]
     Active Substance: LEVOTHYROXINE
     Dosage: 25 MG, QD (1 TABLET)
     Route: 048
     Dates: start: 20170309
  15. KYPROLIS [Suspect]
     Active Substance: CARFILZOMIB
     Dosage: 27 MG/M2, UNK ON DAY 1, 2, 8, 9, 15, AND 16 EVERY 28 DAYS, FOUR CYCLES
     Route: 042
  16. TEMAZEPAM. [Concomitant]
     Active Substance: TEMAZEPAM
     Dosage: 15 MG, QD (1 AT BEDTIME)
     Route: 048
     Dates: start: 20160406
  17. VITAMIN C [Concomitant]
     Active Substance: ASCORBIC ACID
     Dosage: UNK UNK, QD
     Route: 048
     Dates: start: 20130722
  18. XANAX [Concomitant]
     Active Substance: ALPRAZOLAM
     Dosage: 0.25 MG 1 TABLET EVERY 12 AS NECESSARY
     Dates: start: 20170412
  19. ZITHROMAX [Concomitant]
     Active Substance: AZITHROMYCIN DIHYDRATE
     Dosage: UNK  (USE AS DIRECTED)
     Dates: start: 20170311
  20. KYPROLIS [Suspect]
     Active Substance: CARFILZOMIB
     Indication: PLASMA CELL MYELOMA
     Dosage: 33 MG, UNK ON DAY 1, 2, 8, 9, 15, AND 16 EVERY 28 DAYS
     Route: 065
     Dates: start: 20161019
  21. MULTIDAY [Concomitant]
     Dosage: 1 UNK, QD
     Route: 048
     Dates: start: 20161005
  22. FLAGYL [Concomitant]
     Active Substance: METRONIDAZOLE\METRONIDAZOLE HYDROCHLORIDE
     Dosage: 250 MG, TID (1 TABLET FOR 10 DAYS)
     Dates: start: 20170331

REACTIONS (2)
  - Asthenia [Not Recovered/Not Resolved]
  - Fatigue [Not Recovered/Not Resolved]

NARRATIVE: CASE EVENT DATE: 2016
